FAERS Safety Report 4702786-5 (Version None)
Quarter: 2005Q2

REPORT INFORMATION
  Report Type: 
  Country: None (occurrence: None)
  Receive Date: 20050628
  Receipt Date: 20050628
  Transmission Date: 20051028
  Serious: Yes (Hospitalization)
  Sender: FDA-Public Use
  Company Number: None

PATIENT
  Sex: Female
  Weight: 63.5036 kg

DRUGS (8)
  1. ETODOLAC [Suspect]
     Indication: OSTEOARTHRITIS
     Dosage: 500 MG PO BID
     Route: 048
     Dates: start: 20050608, end: 20050617
  2. EVISTA [Concomitant]
  3. ADVAIR DISKUS 100/50 [Concomitant]
  4. SINGULAIR [Concomitant]
  5. CLARINEX [Concomitant]
  6. CENTRUM A-ZINC [Concomitant]
  7. FLAXSEED OIL [Concomitant]
  8. OSTEO-BIFLEX [Concomitant]

REACTIONS (7)
  - CONTUSION [None]
  - ERYTHEMA MULTIFORME [None]
  - FATIGUE [None]
  - FEELING HOT AND COLD [None]
  - PRURITUS [None]
  - RASH [None]
  - SKIN DISCOLOURATION [None]
